FAERS Safety Report 13757648 (Version 3)
Quarter: 2018Q4

REPORT INFORMATION
  Report Type: Spontaneous
  Country: DE (occurrence: DE)
  Receive Date: 20170717
  Receipt Date: 20181214
  Transmission Date: 20190204
  Serious: Yes (Hospitalization)
  Sender: FDA-Public Use
  Company Number: DE-ACCORD-053696

PATIENT
  Age: 76 Year
  Sex: Male
  Weight: 97.4 kg

DRUGS (22)
  1. RAMIPRIL. [Concomitant]
     Active Substance: RAMIPRIL
  2. VALSARTAN. [Concomitant]
     Active Substance: VALSARTAN
     Indication: HYPERTENSION
     Dosage: 80 MG EVERY DAYS?1-0-0
     Dates: end: 20170512
  3. CALCIVIT D [Concomitant]
     Dosage: DOSE: 1
  4. BICALUTAMIDE. [Suspect]
     Active Substance: BICALUTAMIDE
     Indication: PROSTATE CANCER
     Route: 048
     Dates: start: 20170430, end: 20170508
  5. METFORMIN [Concomitant]
     Active Substance: METFORMIN HYDROCHLORIDE
  6. ALLOPURINOL. [Concomitant]
     Active Substance: ALLOPURINOL
  7. FLUVASTATIN [Concomitant]
     Active Substance: FLUVASTATIN SODIUM
  8. FOLSAN [Concomitant]
     Active Substance: FOLIC ACID
  9. FALITHROM [Concomitant]
     Active Substance: PHENPROCOUMON
  10. FERRO SANOL [Concomitant]
     Active Substance: FERROUS GLYCINE SULFATE
  11. NOVAMINSULFON 30 [Concomitant]
     Dosage: DOSE: 4
  12. BELOC-ZOC MITE [Concomitant]
     Active Substance: METOPROLOL SUCCINATE
     Dosage: DOSE: 1
  13. HYDROCHLOROTHIAZIDE. [Concomitant]
     Active Substance: HYDROCHLOROTHIAZIDE
  14. PANTOZOL [Concomitant]
     Active Substance: PANTOPRAZOLE SODIUM
  15. TOREM [Concomitant]
     Active Substance: TORSEMIDE
  16. HYDROMORPHONE/HYDROMORPHONE HYDROCHLORIDE [Concomitant]
     Dosage: DOSE: 2
  17. ISOPHANE INSULIN [Concomitant]
     Active Substance: INSULIN NOS
  18. JANUVIA [Concomitant]
     Active Substance: SITAGLIPTIN PHOSPHATE
  19. AMLODIPINE [Concomitant]
     Active Substance: AMLODIPINE BESYLATE
  20. SARTAN [Concomitant]
     Active Substance: LOSARTAN POTASSIUM
  21. INSULIN LISPRO/INSULIN LISPRO PROTAMINE SUSPE [Concomitant]
  22. FERROSONAL [Concomitant]

REACTIONS (2)
  - Cutaneous vasculitis [Not Recovered/Not Resolved]
  - Nephrotic syndrome [Not Recovered/Not Resolved]

NARRATIVE: CASE EVENT DATE: 20170501
